FAERS Safety Report 7311204-2 (Version None)
Quarter: 2011Q1

REPORT INFORMATION
  Report Type: 
  Country: None (occurrence: None)
  Receive Date: 20110224
  Receipt Date: 20100831
  Transmission Date: 20110831
  Serious: No
  Sender: FDA-Public Use
  Company Number: US-BAYER-201035150NA

PATIENT
  Sex: Female

DRUGS (1)
  1. MIRENA [Suspect]
     Indication: CONTRACEPTION
     Dosage: 20 MCG/24HR, UNK
     Route: 015
     Dates: start: 20100316, end: 20100902

REACTIONS (5)
  - ACNE CYSTIC [None]
  - PELVIC PAIN [None]
  - BREAST PAIN [None]
  - DEVICE EXPULSION [None]
  - BREAST TENDERNESS [None]
